FAERS Safety Report 12649083 (Version 1)
Quarter: 2016Q3

REPORT INFORMATION
  Report Type: Report from Study
  Country: CA (occurrence: CA)
  Receive Date: 20160812
  Receipt Date: 20160812
  Transmission Date: 20161109
  Serious: Yes (Other)
  Sender: FDA-Public Use
  Company Number: CA-009507513-1608CAN005851

PATIENT
  Sex: Female

DRUGS (1)
  1. TEMODAL [Suspect]
     Active Substance: TEMOZOLOMIDE
     Indication: ANAPLASTIC ASTROCYTOMA
     Dosage: 100 MG, DAILY X 28 DAYS, CYCLICAL
     Route: 048
     Dates: start: 20141201, end: 201605

REACTIONS (1)
  - Malignant neoplasm progression [Unknown]
